FAERS Safety Report 10755656 (Version 9)
Quarter: 2015Q2

REPORT INFORMATION
  Report Type: Spontaneous
  Country: US (occurrence: US)
  Receive Date: 20150202
  Receipt Date: 20150511
  Transmission Date: 20150821
  Serious: Yes (Other)
  Sender: FDA-Public Use
  Company Number: US-009507513-1502USA000337

PATIENT
  Age: 24 Year
  Sex: Female
  Weight: 116.55 kg

DRUGS (1)
  1. IMPLANON [Suspect]
     Active Substance: ETONOGESTREL
     Indication: CONTRACEPTION
     Dosage: SINGLE ROD, FREQUENCY UNKNOWN, LEFT ARM
     Route: 058
     Dates: start: 20130121, end: 20150320

REACTIONS (10)
  - Menstruation irregular [Recovered/Resolved]
  - Pelvic pain [Unknown]
  - Nausea [Unknown]
  - Device deployment issue [Recovered/Resolved]
  - Weight increased [Unknown]
  - Medical device complication [Recovered/Resolved]
  - Complication of device removal [Recovered/Resolved]
  - Surgery [Recovered/Resolved]
  - Device dislocation [Recovered/Resolved]
  - Expired product administered [Unknown]

NARRATIVE: CASE EVENT DATE: 2013
